FAERS Safety Report 7075477-6 (Version None)
Quarter: 2010Q4

REPORT INFORMATION
  Report Type: 
  Country: None (occurrence: None)
  Receive Date: 20101030
  Receipt Date: 20100913
  Transmission Date: 20110411
  Serious: Yes (Other)
  Sender: FDA-Public Use
  Company Number: US-WYE-H17498110

PATIENT
  Sex: Male

DRUGS (2)
  1. PRISTIQ [Suspect]
     Indication: DEPRESSION
     Dosage: UNKNOWN
     Route: 048
  2. PRISTIQ [Suspect]
     Dosage: WEANED OFF THERAPY (DOSE REDUCTIONS UNKNOWN)
     Route: 048
     Dates: end: 20100101

REACTIONS (1)
  - VISION BLURRED [None]
